FAERS Safety Report 8962196 (Version 1)
Quarter: 2012Q4

REPORT INFORMATION
  Report Type: 
  Country: US (occurrence: US)
  Receive Date: 20121212
  Receipt Date: 20121212
  Transmission Date: 20130627
  Serious: No
  Sender: FDA-Public Use
  Company Number: US-PFIZER INC-2012314469

PATIENT
  Age: 71 Year
  Sex: Male
  Weight: 136.96 kg

DRUGS (1)
  1. LIPITOR [Suspect]
     Indication: HIGH CHOLESTEROL
     Dosage: 80 mg, 1x/day
     Route: 048

REACTIONS (1)
  - Nasopharyngitis [Unknown]
